FAERS Safety Report 25678793 (Version 1)
Quarter: 2025Q3

REPORT INFORMATION
  Report Type: Spontaneous
  Country: CN (occurrence: CN)
  Receive Date: 20250814
  Receipt Date: 20250814
  Transmission Date: 20251021
  Serious: Yes (Other)
  Sender: BEIGENE
  Company Number: CN-BEIGENE-BGN-2025-013158

PATIENT
  Age: 59 Year

DRUGS (3)
  1. TISLELIZUMAB [Suspect]
     Active Substance: TISLELIZUMAB
     Indication: Small cell lung cancer
  2. TISLELIZUMAB [Suspect]
     Active Substance: TISLELIZUMAB
  3. PACLITAXEL [Concomitant]
     Active Substance: PACLITAXEL
     Indication: Small cell lung cancer

REACTIONS (1)
  - Metastases to central nervous system [Unknown]
